FAERS Safety Report 4491896-6 (Version None)
Quarter: 2004Q4

REPORT INFORMATION
  Report Type: 
  Country: None (occurrence: None)
  Receive Date: 20041101
  Receipt Date: 20041008
  Transmission Date: 20050328
  Serious: Yes (Hospitalization)
  Sender: FDA-Public Use
  Company Number: A03200403583

PATIENT
  Age: 62 Year
  Sex: Female

DRUGS (9)
  1. PLAVIX [Suspect]
     Indication: STENT PLACEMENT
     Dosage: ORAL
     Route: 048
  2. ARAVA [Suspect]
     Indication: RHEUMATOID ARTHRITIS
     Dosage: ORAL
     Route: 048
  3. METAXALONE [Concomitant]
  4. GLIPIZIDE [Concomitant]
  5. PRAMIPEXOLE DIHYDROCHLORIDE [Concomitant]
  6. METOPROLOL SUCCINATE [Concomitant]
  7. GABAPENTIN [Concomitant]
  8. PANTOPRAZOLE SODIUM [Concomitant]
  9. METHYLPREDNISOLONE [Concomitant]

REACTIONS (1)
  - STEVENS-JOHNSON SYNDROME [None]
